FAERS Safety Report 23282591 (Version 1)
Quarter: 2023Q4

REPORT INFORMATION
  Report Type: Spontaneous
  Country: US (occurrence: None)
  Receive Date: 20231209
  Receipt Date: 20231209
  Transmission Date: 20240109
  Serious: Yes (Hospitalization)
  Sender: FDA-Public Use
  Company Number: None

PATIENT
  Age: 60 Year
  Sex: Female
  Weight: 88.3 kg

DRUGS (2)
  1. ARIMIDEX [Suspect]
     Active Substance: ANASTROZOLE
     Dates: end: 20230606
  2. NOLVADEX [Suspect]
     Active Substance: TAMOXIFEN CITRATE
     Dates: end: 20231122

REACTIONS (15)
  - Drug intolerance [None]
  - Mood swings [None]
  - Irritability [None]
  - Breast cellulitis [None]
  - Chills [None]
  - Cough [None]
  - Nausea [None]
  - Blood pressure increased [None]
  - Pollakiuria [None]
  - Tachycardia [None]
  - Leukocytosis [None]
  - Limb discomfort [None]
  - Pain in extremity [None]
  - Erythema [None]
  - Seroma [None]

NARRATIVE: CASE EVENT DATE: 20231122
